FAERS Safety Report 8933640 (Version 1)
Quarter: 2012Q4

REPORT INFORMATION
  Report Type: 
  Country: US (occurrence: US)
  Receive Date: 20121129
  Receipt Date: 20121129
  Transmission Date: 20130627
  Serious: Yes (Other)
  Sender: FDA-Public Use
  Company Number: US-INCYTE CORPORATION-2012IN002419

PATIENT
  Age: 68 Year
  Sex: Male

DRUGS (13)
  1. JAKAFI [Suspect]
     Indication: MYELOFIBROSIS
     Dosage: 15 mg, bid
     Route: 048
     Dates: end: 20121031
  2. NORVASC [Concomitant]
  3. PROCRIT [Concomitant]
  4. LISINOPRIL [Concomitant]
  5. PANTOPRAZOLE [Concomitant]
  6. MINOCYCLINE [Concomitant]
  7. PRAVACHOL [Concomitant]
  8. METOPROLOL [Concomitant]
  9. GEMFIBROZIL [Concomitant]
  10. FISH OIL [Concomitant]
  11. VITAMIN E [Concomitant]
  12. CLINDAMYCIN [Concomitant]
  13. DESONIDE [Concomitant]
     Route: 061

REACTIONS (1)
  - Cardiomyopathy [Unknown]
